FAERS Safety Report 16368531 (Version 1)
Quarter: 2019Q2

REPORT INFORMATION
  Report Type: Report from Study
  Country: US (occurrence: US)
  Receive Date: 20190529
  Receipt Date: 20190529
  Transmission Date: 20190711
  Serious: Yes (Other)
  Sender: FDA-Public Use
  Company Number: US-ACTELION-A-NJ2019-190958

PATIENT
  Age: 71 Year
  Sex: Female

DRUGS (26)
  1. TRUSOPT [Concomitant]
     Active Substance: DORZOLAMIDE HYDROCHLORIDE
     Route: 047
  2. CALCITRIOL. [Concomitant]
     Active Substance: CALCITRIOL
  3. HUMULIN NOS [Concomitant]
     Active Substance: INSULIN HUMAN
  4. ATORVASTATIN [Concomitant]
     Active Substance: ATORVASTATIN
  5. OPSUMIT [Suspect]
     Active Substance: MACITENTAN
     Indication: PULMONARY ARTERIAL HYPERTENSION
     Dosage: 10 MG, QD
     Route: 048
     Dates: start: 201601
  6. LOSARTAN. [Concomitant]
     Active Substance: LOSARTAN
  7. XALATAN [Concomitant]
     Active Substance: LATANOPROST
     Route: 047
  8. PLAVIX [Concomitant]
     Active Substance: CLOPIDOGREL BISULFATE
  9. SUCRALFATE. [Concomitant]
     Active Substance: SUCRALFATE
  10. SPIRIVA COMBI [Concomitant]
     Active Substance: TIOTROPIUM BROMIDE
  11. FUROSEMIDE. [Concomitant]
     Active Substance: FUROSEMIDE
  12. VITAMIN D3 [Concomitant]
     Active Substance: CHOLECALCIFEROL
  13. HYDRALAZINE [Concomitant]
     Active Substance: HYDRALAZINE HYDROCHLORIDE
  14. ISOSORBIDE MONONITRATE. [Concomitant]
     Active Substance: ISOSORBIDE MONONITRATE
  15. OXYGEN. [Concomitant]
     Active Substance: OXYGEN
     Dosage: 2 L NASAL CANNULA, PRN
     Route: 055
  16. SINGULAIR [Concomitant]
     Active Substance: MONTELUKAST SODIUM
  17. METOPROLOL. [Concomitant]
     Active Substance: METOPROLOL
  18. LORATADINE. [Concomitant]
     Active Substance: LORATADINE
  19. VENTOLIN [Concomitant]
     Active Substance: ALBUTEROL SULFATE
  20. DUONEB [Concomitant]
     Active Substance: ALBUTEROL SULFATE\IPRATROPIUM BROMIDE
  21. ASPIRIN. [Concomitant]
     Active Substance: ASPIRIN
  22. ADVAIR HFA [Concomitant]
     Active Substance: FLUTICASONE PROPIONATE\SALMETEROL XINAFOATE
  23. CLONIDINE. [Concomitant]
     Active Substance: CLONIDINE
     Dosage: PATCH
     Route: 062
  24. K-TAB [Concomitant]
     Active Substance: POTASSIUM CHLORIDE
  25. PANTOPRAZOLE [Concomitant]
     Active Substance: PANTOPRAZOLE
  26. FERROUS SULFATE. [Concomitant]
     Active Substance: FERROUS SULFATE

REACTIONS (4)
  - Pneumonia [Unknown]
  - Dyspnoea [Unknown]
  - Wheezing [Unknown]
  - Cough [Unknown]

NARRATIVE: CASE EVENT DATE: 20190422
